FAERS Safety Report 11112527 (Version 1)
Quarter: 2015Q2

REPORT INFORMATION
  Report Type: Report from Study
  Country: BR (occurrence: BR)
  Receive Date: 20150514
  Receipt Date: 20150514
  Transmission Date: 20150821
  Serious: Yes (Death, Hospitalization)
  Sender: FDA-Public Use
  Company Number: BR-ROCHE-1576968

PATIENT
  Sex: Female

DRUGS (1)
  1. MABTHERA [Suspect]
     Active Substance: RITUXIMAB
     Indication: RHEUMATOID ARTHRITIS
     Route: 065
     Dates: start: 20110210, end: 20150406

REACTIONS (7)
  - Wound [Unknown]
  - Interstitial lung disease [Fatal]
  - Acute respiratory failure [Fatal]
  - Rheumatoid arthritis [Fatal]
  - Hypertension [Fatal]
  - Pain [Unknown]
  - Dyspnoea [Unknown]
